FAERS Safety Report 23714542 (Version 1)
Quarter: 2024Q2

REPORT INFORMATION
  Report Type: Spontaneous
  Country: GB (occurrence: GB)
  Receive Date: 20240406
  Receipt Date: 20240406
  Transmission Date: 20240716
  Serious: Yes (Hospitalization, Other)
  Sender: FDA-Public Use
  Company Number: GB-TEVA-VS-3173200

PATIENT
  Sex: Female

DRUGS (1)
  1. OLANZAPINE [Suspect]
     Active Substance: OLANZAPINE
     Indication: Gastrooesophageal reflux disease
     Dosage: UNK
     Route: 048

REACTIONS (7)
  - Loss of consciousness [Unknown]
  - Gait disturbance [Unknown]
  - Hypotonia [Unknown]
  - Pain [Unknown]
  - Panic attack [Unknown]
  - Product dispensing error [Unknown]
  - Product label on wrong product [Unknown]
